FAERS Safety Report 5017645-0 (Version None)
Quarter: 2006Q2

REPORT INFORMATION
  Report Type: 
  Country: None (occurrence: None)
  Receive Date: 20060605
  Receipt Date: 20060417
  Transmission Date: 20061013
  Serious: Yes (Other)
  Sender: FDA-Public Use
  Company Number: US-ROCHE-444928

PATIENT
  Age: 51 Year
  Sex: Male
  Weight: 89.8 kg

DRUGS (2)
  1. PEGASYS [Suspect]
     Route: 058
     Dates: start: 20060106, end: 20060407
  2. RIBAVIRIN [Suspect]
     Route: 065
     Dates: start: 20060106, end: 20060407

REACTIONS (4)
  - AGGRESSION [None]
  - ANXIETY [None]
  - PARANOIA [None]
  - SUSPICIOUSNESS [None]
